FAERS Safety Report 6405165-8 (Version None)
Quarter: 2009Q4

REPORT INFORMATION
  Report Type: 
  Country: None (occurrence: None)
  Receive Date: 20091019
  Receipt Date: 20090915
  Transmission Date: 20100525
  Serious: No
  Sender: FDA-Public Use
  Company Number: US-BAYER-200933644NA

PATIENT
  Age: 70 Year
  Sex: Female

DRUGS (1)
  1. ULTRAVIST 300 [Suspect]
     Indication: COMPUTERISED TOMOGRAM THORAX
     Dosage: TOTAL DAILY DOSE: 100 ML
     Route: 042
     Dates: start: 20090915, end: 20090915

REACTIONS (3)
  - NAUSEA [None]
  - URTICARIA [None]
  - VOMITING [None]
